FAERS Safety Report 25961075 (Version 1)
Quarter: 2025Q4

REPORT INFORMATION
  Report Type: Report from Study
  Country: CA (occurrence: CA)
  Receive Date: 20251027
  Receipt Date: 20251027
  Transmission Date: 20260118
  Serious: Yes (Other)
  Sender: CELLTRION
  Company Number: CA-CELLTRION INC.-2025CA038584

PATIENT

DRUGS (2)
  1. OMALIZUMAB [Suspect]
     Active Substance: OMALIZUMAB
     Indication: Chronic spontaneous urticaria
     Dosage: OMLYCLO - MAINTENANCE - 300 MG - SC  (SUBCUTANEOUS) EVERY 4 WEEKS
     Route: 058
     Dates: start: 20250827
  2. BILASTINE [Concomitant]
     Active Substance: BILASTINE
     Dosage: 80 MG DAILY
     Route: 048
     Dates: start: 202412

REACTIONS (5)
  - Angioedema [Recovering/Resolving]
  - Fluid retention [Recovering/Resolving]
  - Lip swelling [Recovering/Resolving]
  - Periorbital swelling [Recovering/Resolving]
  - Urticaria [Recovering/Resolving]

NARRATIVE: CASE EVENT DATE: 20250101
